FAERS Safety Report 10434108 (Version 2)
Quarter: 2014Q3

REPORT INFORMATION
  Report Type: Spontaneous
  Country: VE (occurrence: VE)
  Receive Date: 20140905
  Receipt Date: 20140926
  Transmission Date: 20150326
  Serious: Yes (Other)
  Sender: FDA-Public Use
  Company Number: VE-INCYTE CORPORATION-2014IN002521

PATIENT
  Age: 64 Year
  Sex: Female
  Weight: 54.8 kg

DRUGS (2)
  1. JAKAFI [Suspect]
     Active Substance: RUXOLITINIB
     Indication: MYELOFIBROSIS
     Dosage: 10 MG, BID
     Route: 048
  2. JAKAFI [Suspect]
     Active Substance: RUXOLITINIB
     Indication: THROMBOCYTOPENIA
     Dosage: 10 MG, BID
     Route: 048
     Dates: start: 20131105, end: 20140811

REACTIONS (6)
  - Acute myeloid leukaemia [Unknown]
  - Weight increased [Unknown]
  - Haemoglobin decreased [Unknown]
  - Weight decreased [Unknown]
  - Neutrophil count decreased [Unknown]
  - Therapeutic response decreased [Unknown]

NARRATIVE: CASE EVENT DATE: 20131217
